FAERS Safety Report 4987578-4 (Version None)
Quarter: 2006Q2

REPORT INFORMATION
  Report Type: 
  Country: None (occurrence: None)
  Receive Date: 20060501
  Receipt Date: 20060421
  Transmission Date: 20061013
  Serious: Yes (Other)
  Sender: FDA-Public Use
  Company Number: US-NOVOPROD-252602

PATIENT
  Age: 69 Year
  Sex: Male
  Weight: 74 kg

DRUGS (1)
  1. LEVEMIR [Suspect]
     Indication: DIABETES MELLITUS
     Dosage: 8 - 10 UNITS, BID
     Route: 058
     Dates: start: 20060214, end: 20060301

REACTIONS (1)
  - TRANSIENT ISCHAEMIC ATTACK [None]
